FAERS Safety Report 9710679 (Version 1)
Quarter: 2013Q4

REPORT INFORMATION
  Report Type: Spontaneous
  Country: US (occurrence: US)
  Receive Date: 20131126
  Receipt Date: 20131126
  Transmission Date: 20140711
  Serious: No
  Sender: FDA-Public Use
  Company Number: US-BRISTOL-MYERS SQUIBB COMPANY-19466739

PATIENT
  Age: 49 Year
  Sex: Female
  Weight: 131.52 kg

DRUGS (6)
  1. BYDUREON [Suspect]
     Route: 058
     Dates: start: 201308
  2. METFORMIN [Concomitant]
  3. METOPROLOL [Concomitant]
  4. LISINOPRIL [Concomitant]
  5. POTASSIUM [Concomitant]
  6. ASPIRIN [Concomitant]

REACTIONS (1)
  - Drug ineffective [Unknown]
